FAERS Safety Report 6999970-7 (Version None)
Quarter: 2010Q3

REPORT INFORMATION
  Report Type: 
  Country: None (occurrence: None)
  Receive Date: 20100920
  Receipt Date: 20100908
  Transmission Date: 20110219
  Serious: Yes (Death, Hospitalization, Other)
  Sender: FDA-Public Use
  Company Number: AR-GENZYME-CLOF-1001202

PATIENT
  Age: 33 Year
  Sex: Male

DRUGS (13)
  1. CLOLAR [Suspect]
     Indication: ACUTE LYMPHOCYTIC LEUKAEMIA
  2. CLOLAR [Suspect]
     Indication: NON-HODGKIN'S LYMPHOMA
  3. ETOPOSIDE [Suspect]
     Indication: ACUTE LYMPHOCYTIC LEUKAEMIA
     Dosage: UNK
  4. ETOPOSIDE [Suspect]
     Indication: NON-HODGKIN'S LYMPHOMA
  5. CYCLOPHOSPHAMIDE [Suspect]
     Indication: ACUTE LYMPHOCYTIC LEUKAEMIA
  6. CYCLOPHOSPHAMIDE [Suspect]
     Indication: NON-HODGKIN'S LYMPHOMA
  7. AMPHOTERICIN B [Suspect]
     Indication: FUNGAL INFECTION
     Dosage: UNK
  8. FK 506 [Suspect]
     Indication: ACUTE GRAFT VERSUS HOST DISEASE
  9. CORTICOSTEROIDS FOR SYSTEMIC USE [Suspect]
     Indication: ACUTE GRAFT VERSUS HOST DISEASE
  10. MYCOPHENOLATE MOFETIL [Suspect]
     Indication: ACUTE GRAFT VERSUS HOST DISEASE
  11. GANCICLOVIR [Suspect]
     Indication: CYTOMEGALOVIRUS INFECTION
  12. VANCOMYCIN [Suspect]
     Indication: CLOSTRIDIUM DIFFICILE COLITIS
     Route: 048
  13. IMMUNGLOBULIN [Suspect]
     Indication: INFECTION

REACTIONS (11)
  - AMAUROSIS [None]
  - BONE MARROW FAILURE [None]
  - CEREBRAL HAEMATOMA [None]
  - CLOSTRIDIUM DIFFICILE COLITIS [None]
  - CYTOMEGALOVIRUS INFECTION [None]
  - GRAFT VERSUS HOST DISEASE [None]
  - HYPOGAMMAGLOBULINAEMIA [None]
  - PANCYTOPENIA [None]
  - PULMONARY MYCOSIS [None]
  - STAPHYLOCOCCAL BACTERAEMIA [None]
  - SUBARACHNOID HAEMORRHAGE [None]
